APPROVED DRUG PRODUCT: THEOPHYLLINE
Active Ingredient: THEOPHYLLINE
Strength: 400MG
Dosage Form/Route: TABLET, EXTENDED RELEASE;ORAL
Application: A040086 | Product #002 | TE Code: AB
Applicant: RHODES PHARMACEUTICALS LP
Approved: Sep 1, 1982 | RLD: Yes | RS: No | Type: RX